FAERS Safety Report 11381820 (Version 6)
Quarter: 2019Q1

REPORT INFORMATION
  Report Type: Spontaneous
  Country: US (occurrence: US)
  Receive Date: 20150814
  Receipt Date: 20190319
  Transmission Date: 20190417
  Serious: Yes (Hospitalization, Other)
  Sender: FDA-Public Use
  Company Number: US-DSJP-DSU-2015-124874

PATIENT
  Age: 56 Year
  Sex: Female
  Weight: 104.31 kg

DRUGS (3)
  1. OMEPRAZOLE. [Concomitant]
     Active Substance: OMEPRAZOLE
     Indication: PRODUCT USED FOR UNKNOWN INDICATION
     Dosage: 20 MG, QD
     Route: 048
  2. AZOR [Suspect]
     Active Substance: AMLODIPINE BESYLATE\OLMESARTAN MEDOXOMIL
     Indication: HYPERTENSION
     Dosage: 5-40 MG, ONCE EVERY 1 MO
     Route: 048
     Dates: end: 2012
  3. BENICAR [Suspect]
     Active Substance: OLMESARTAN MEDOXOMIL
     Indication: PRODUCT USED FOR UNKNOWN INDICATION
     Dosage: UNK

REACTIONS (7)
  - Sprue-like enteropathy [Recovering/Resolving]
  - Diverticulum [Unknown]
  - Coeliac disease [Recovered/Resolved]
  - Acute kidney injury [Recovering/Resolving]
  - Abdominal lymphadenopathy [Unknown]
  - Gastroenteritis viral [Unknown]
  - Hiatus hernia [Unknown]

NARRATIVE: CASE EVENT DATE: 201108
